FAERS Safety Report 4409900-X (Version None)
Quarter: 2004Q3

REPORT INFORMATION
  Report Type: 
  Country: None (occurrence: None)
  Receive Date: 20040728
  Receipt Date: 20040728
  Transmission Date: 20050211
  Serious: No
  Sender: FDA-Public Use
  Company Number: None

PATIENT
  Age: 2 Year
  Sex: Male

DRUGS (1)
  1. ZYRTEC [Suspect]
     Dosage: SUSPENSION 1MG/ML

REACTIONS (2)
  - INSOMNIA [None]
  - MEDICATION ERROR [None]
